FAERS Safety Report 7372940-5 (Version None)
Quarter: 2011Q1

REPORT INFORMATION
  Report Type: 
  Country: None (occurrence: None)
  Receive Date: 20110324
  Receipt Date: 20110302
  Transmission Date: 20110831
  Serious: Yes (Other)
  Sender: FDA-Public Use
  Company Number: US-BAYER-201027356NA

PATIENT
  Sex: Female

DRUGS (10)
  1. OCELLA [Suspect]
     Indication: PRODUCT USED FOR UNKNOWN INDICATION
  2. MICROGESTIN 1.5/30 [Concomitant]
  3. YAZ [Suspect]
     Indication: PRODUCT USED FOR UNKNOWN INDICATION
  4. FLUOXETINE [Concomitant]
     Dosage: 20 MG, OM
     Route: 048
  5. MEPROZINE [Concomitant]
     Dosage: 1 CAPSULE, PRN
     Route: 048
  6. BELLADONNA AND PHENOBARBITONE [Concomitant]
     Dosage: 2 TABS, TID
     Route: 048
  7. PROMETHAZINE [Concomitant]
     Dosage: 1-2 TABS, PRN
     Route: 048
  8. LOESTRIN FE 1/20 [Concomitant]
  9. UNCODEABLE ^UNCLASSIFIABLE^ [Concomitant]
  10. NEXIUM [Concomitant]
     Dosage: 40 MG, QD
     Route: 048

REACTIONS (3)
  - TACHYCARDIA [None]
  - CARDIOVASCULAR DISORDER [None]
  - CHOLECYSTECTOMY [None]
